FAERS Safety Report 8978538 (Version 1)
Quarter: 2012Q4

REPORT INFORMATION
  Report Type: 
  Country: US (occurrence: US)
  Receive Date: 20121220
  Receipt Date: 20121220
  Transmission Date: 20130627
  Serious: Yes (Other)
  Sender: FDA-Public Use
  Company Number: US-PFIZER INC-2012318532

PATIENT
  Age: 33 Year
  Sex: Female
  Weight: 52 kg

DRUGS (1)
  1. DEPO-PROVERA [Suspect]
     Indication: BIRTH CONTROL
     Dosage: UNK
     Dates: start: 201206, end: 2012

REACTIONS (13)
  - Urinary tract infection [Not Recovered/Not Resolved]
  - Coital bleeding [Not Recovered/Not Resolved]
  - Depression [Not Recovered/Not Resolved]
  - Anxiety [Not Recovered/Not Resolved]
  - Insomnia [Not Recovered/Not Resolved]
  - Hot flush [Not Recovered/Not Resolved]
  - Headache [Not Recovered/Not Resolved]
  - Vulvovaginal dryness [Not Recovered/Not Resolved]
  - Arthralgia [Not Recovered/Not Resolved]
  - Fatigue [Not Recovered/Not Resolved]
  - Alopecia [Not Recovered/Not Resolved]
  - Muscle spasms [Not Recovered/Not Resolved]
  - Dysuria [Not Recovered/Not Resolved]
